FAERS Safety Report 8426248-7 (Version None)
Quarter: 2012Q2

REPORT INFORMATION
  Report Type: 
  Country: None (occurrence: None)
  Receive Date: 20120323
  Receipt Date: 20110425
  Transmission Date: 20120825
  Serious: Yes (Other)
  Sender: FDA-Public Use
  Company Number: 163-21880-11043209

PATIENT
  Age: 89 Year
  Sex: Male

DRUGS (14)
  1. REVLIMID [Suspect]
     Indication: MULTIPLE MYELOMA
     Dosage: 25 MG, DAILY X 21 DAYS, PO ; 15 MG, DAILY X 21 DAYS, PO
     Route: 048
     Dates: start: 20110301
  2. REVLIMID [Suspect]
     Indication: MULTIPLE MYELOMA
     Dosage: 25 MG, DAILY X 21 DAYS, PO ; 15 MG, DAILY X 21 DAYS, PO
     Route: 048
     Dates: start: 20110401
  3. LISINOPRIL [Concomitant]
  4. SERTRALINE HYDROCHLORIDE [Concomitant]
  5. PROBENECID [Concomitant]
  6. MULTIVITAMIN [Concomitant]
  7. INDOMETHACIN [Concomitant]
  8. ASPIRIN [Concomitant]
  9. METOPROLOL TARTRATE [Concomitant]
  10. DEXAMETHASONE [Concomitant]
  11. FUROSEMIDE [Concomitant]
  12. KLOR-CON [Concomitant]
  13. MEGESTROL ACETATE [Concomitant]
  14. NAPROXEN [Concomitant]

REACTIONS (3)
  - HAEMATOCHEZIA [None]
  - PLATELET COUNT DECREASED [None]
  - DIARRHOEA [None]
